FAERS Safety Report 9168544 (Version 1)
Quarter: 2013Q1

REPORT INFORMATION
  Report Type: Spontaneous
  Country: JP (occurrence: JP)
  Receive Date: 20130318
  Receipt Date: 20130318
  Transmission Date: 20140127
  Serious: Yes (Life-Threatening, Hospitalization, Other)
  Sender: FDA-Public Use
  Company Number: JP-009507513-2011SP055240

PATIENT
  Age: 47 Year
  Sex: Female
  Weight: 55 kg

DRUGS (1)
  1. MARVELON [Suspect]
     Indication: ENDOMETRIOSIS
     Dosage: 1 DF, QD
     Route: 048
     Dates: start: 20070703, end: 20111029

REACTIONS (4)
  - Thoracic outlet syndrome [Recovered/Resolved]
  - Deep vein thrombosis [Recovering/Resolving]
  - Pulmonary embolism [Recovering/Resolving]
  - Off label use [Unknown]
